FAERS Safety Report 25356809 (Version 3)
Quarter: 2025Q3

REPORT INFORMATION
  Report Type: Spontaneous
  Country: JP (occurrence: JP)
  Receive Date: 20250526
  Receipt Date: 20250829
  Transmission Date: 20251020
  Serious: Yes (Hospitalization, Other)
  Sender: BRISTOL-MYERS SQUIBB COMPANY
  Company Number: JP-BRISTOL-MYERS SQUIBB COMPANY-2025-074255

PATIENT
  Age: 73 Year
  Sex: Female

DRUGS (14)
  1. YERVOY [Suspect]
     Active Substance: IPILIMUMAB
     Indication: Oesophageal carcinoma
     Route: 041
     Dates: start: 202405, end: 202405
  2. YERVOY [Suspect]
     Active Substance: IPILIMUMAB
     Route: 041
     Dates: start: 202407, end: 202407
  3. YERVOY [Suspect]
     Active Substance: IPILIMUMAB
     Route: 041
     Dates: start: 202408, end: 202408
  4. YERVOY [Suspect]
     Active Substance: IPILIMUMAB
     Route: 041
     Dates: start: 202412, end: 202412
  5. YERVOY [Suspect]
     Active Substance: IPILIMUMAB
     Route: 041
     Dates: start: 202501, end: 202501
  6. YERVOY [Suspect]
     Active Substance: IPILIMUMAB
     Route: 041
     Dates: start: 202503, end: 202503
  7. YERVOY [Suspect]
     Active Substance: IPILIMUMAB
     Route: 041
     Dates: start: 202504, end: 202504
  8. OPDIVO [Suspect]
     Active Substance: NIVOLUMAB
     Indication: Oesophageal carcinoma
     Dates: start: 202405, end: 202405
  9. OPDIVO [Suspect]
     Active Substance: NIVOLUMAB
     Dates: start: 202407, end: 202407
  10. OPDIVO [Suspect]
     Active Substance: NIVOLUMAB
     Dates: start: 202408, end: 202408
  11. OPDIVO [Suspect]
     Active Substance: NIVOLUMAB
     Dates: start: 202412, end: 202412
  12. OPDIVO [Suspect]
     Active Substance: NIVOLUMAB
     Dates: start: 202501, end: 202501
  13. OPDIVO [Suspect]
     Active Substance: NIVOLUMAB
     Dates: start: 202503, end: 202503
  14. OPDIVO [Suspect]
     Active Substance: NIVOLUMAB
     Dates: start: 202504, end: 202504

REACTIONS (3)
  - Immune-mediated dermatitis [Unknown]
  - Diabetic ketoacidosis [Unknown]
  - Hyperglycaemia [Unknown]

NARRATIVE: CASE EVENT DATE: 20240601
